FAERS Safety Report 10032894 (Version 1)
Quarter: 2014Q1

REPORT INFORMATION
  Report Type: Spontaneous
  Country: GB (occurrence: GB)
  Receive Date: 20140324
  Receipt Date: 20140324
  Transmission Date: 20141002
  Serious: Yes (Death, Hospitalization, Other)
  Sender: FDA-Public Use
  Company Number: GB-B.I. PHARMACEUTICALS,INC./RIDGEFIELD-2014-BI-12675UK

PATIENT
  Sex: Male

DRUGS (3)
  1. PRADAXA [Suspect]
     Indication: CEREBROVASCULAR ACCIDENT PROPHYLAXIS
     Route: 065
  2. PRADAXA [Suspect]
     Indication: ATRIAL FIBRILLATION
  3. ACE INHIBITOR [Concomitant]
     Indication: DIABETES MELLITUS
     Route: 065

REACTIONS (4)
  - Death [Fatal]
  - Renal impairment [Unknown]
  - Epistaxis [Unknown]
  - Haemorrhage [Unknown]
